FAERS Safety Report 8733881 (Version 2)
Quarter: 2012Q4

REPORT INFORMATION
  Report Type: Spontaneous
  Country: US (occurrence: None)
  Receive Date: 20120806
  Receipt Date: 20120816
  Transmission Date: 20130627
  Serious: Yes (Other)
  Sender: FDA-Public Use
  Company Number: JPI-P-022862

PATIENT
  Age: 67 Year
  Sex: Female
  Weight: 78.02 kg

DRUGS (14)
  1. XYREM [Suspect]
     Indication: HYPERSOMNIA
     Dosage: 3 GM (1.5 GM, 2 IN 1 D), ORAL; ORAL; 9 G, (4.5 GM, 2 IN 1 D), ORAL
     Route: 048
     Dates: start: 20061214
  2. XYREM [Suspect]
     Indication: HYPERSOMNIA
     Dosage: 3 GM (1.5 GM, 2 IN 1 D), ORAL; ORAL; 9 G, (4.5 GM, 2 IN 1 D), ORAL
     Route: 048
     Dates: start: 2006, end: 2006
  3. XYREM [Suspect]
     Indication: HYPERSOMNIA
     Dosage: 3 GM (1.5 GM, 2 IN 1 D), ORAL; ORAL; 9 G, (4.5 GM, 2 IN 1 D), ORAL
     Route: 048
     Dates: start: 20061229
  4. MORPHINE [Concomitant]
  5. OXYBUTYNIN [Concomitant]
  6. OMEPRAZOLE [Concomitant]
  7. MULTIVITAMINS [Concomitant]
  8. BIOTIN [Concomitant]
  9. VITAMIN D [Concomitant]
  10. LOVAZA [Concomitant]
  11. PSYLLIUM [Concomitant]
  12. POLYETHLENE GLYCOL [Concomitant]
  13. SENNA [Concomitant]
  14. PROCHLORPERAZINE [Concomitant]

REACTIONS (5)
  - Constipation [None]
  - Liposarcoma [None]
  - Renal cancer [None]
  - Musculoskeletal pain [None]
  - Procedural pain [None]
